FAERS Safety Report 11972048 (Version 1)
Quarter: 2016Q1

REPORT INFORMATION
  Report Type: Report from Study
  Country: BR (occurrence: BR)
  Receive Date: 20160128
  Receipt Date: 20160128
  Transmission Date: 20160526
  Serious: Yes (Other)
  Sender: FDA-Public Use
  Company Number: PHHY2016BR002501

PATIENT
  Sex: Male
  Weight: 71 kg

DRUGS (2)
  1. EXELON PATCH [Suspect]
     Active Substance: RIVASTIGMINE
     Dosage: 0.5 DF, QD (HALF PATCH A DAY)
     Route: 062
  2. EXELON PATCH [Suspect]
     Active Substance: RIVASTIGMINE
     Indication: MEMORY IMPAIRMENT
     Dosage: PATCH 5 CM2
     Route: 062
     Dates: start: 201510

REACTIONS (4)
  - Product use issue [Unknown]
  - Drug ineffective [Unknown]
  - Blood pressure decreased [Recovered/Resolved]
  - Wrong technique in product usage process [Unknown]
